FAERS Safety Report 5484738-3 (Version None)
Quarter: 2007Q4

REPORT INFORMATION
  Report Type: 
  Country: None (occurrence: None)
  Receive Date: 20071012
  Receipt Date: 20071002
  Transmission Date: 20080405
  Serious: Yes (Life-Threatening, Hospitalization)
  Sender: FDA-Public Use
  Company Number: NL-PFIZER INC-2007083180

PATIENT
  Sex: Female
  Weight: 48 kg

DRUGS (2)
  1. LYRICA [Suspect]
     Indication: NEURALGIA
     Route: 048
     Dates: start: 20070629, end: 20070821
  2. PREDNISOLONE ACETATE [Concomitant]

REACTIONS (2)
  - ALOPECIA [None]
  - CEREBROVASCULAR ACCIDENT [None]
